FAERS Safety Report 5848309-9 (Version None)
Quarter: 2008Q3

REPORT INFORMATION
  Report Type: 
  Country: None (occurrence: None)
  Receive Date: 20080818
  Receipt Date: 20080805
  Transmission Date: 20090109
  Serious: Yes (Disabling, Other)
  Sender: FDA-Public Use
  Company Number: US-MERCK-0805USA00687

PATIENT
  Age: 54 Year
  Sex: Female

DRUGS (6)
  1. FOSAMAX [Suspect]
     Indication: OSTEOPOROSIS
     Route: 048
     Dates: start: 19970101, end: 20070101
  2. FOSAMAX [Suspect]
     Route: 048
     Dates: start: 19980801, end: 20010304
  3. FOSAMAX [Suspect]
     Route: 048
     Dates: start: 20010305, end: 20060816
  4. FOSAMAX [Suspect]
     Route: 048
     Dates: start: 20070101, end: 20070401
  5. [THERAPY UNSPECIFIED] [Concomitant]
     Indication: HORMONE THERAPY
     Route: 065
     Dates: start: 19820101
  6. ZOLOFT [Concomitant]
     Route: 065
     Dates: start: 19900101

REACTIONS (28)
  - ABSCESS [None]
  - ACTINIC KERATOSIS [None]
  - ANXIETY [None]
  - APHTHOUS STOMATITIS [None]
  - APICAL GRANULOMA [None]
  - CELLULITIS [None]
  - CONTUSION [None]
  - DENTAL CARIES [None]
  - FINGER AMPUTATION [None]
  - FISTULA [None]
  - GLOSSODYNIA [None]
  - IMPAIRED HEALING [None]
  - JAW DISORDER [None]
  - LACERATION [None]
  - NECK PAIN [None]
  - OEDEMA MOUTH [None]
  - ORAL INFECTION [None]
  - ORAL PAIN [None]
  - OSTEOMYELITIS [None]
  - OSTEONECROSIS [None]
  - PAIN [None]
  - PHARYNGITIS [None]
  - POSTMENOPAUSE [None]
  - RASH PAPULAR [None]
  - SEBORRHOEIC KERATOSIS [None]
  - TEMPOROMANDIBULAR JOINT SYNDROME [None]
  - TOOTH INFECTION [None]
  - TOOTH LOSS [None]
